FAERS Safety Report 16638571 (Version 1)
Quarter: 2019Q3

REPORT INFORMATION
  Report Type: Spontaneous
  Country: GB (occurrence: GB)
  Receive Date: 20190726
  Receipt Date: 20190726
  Transmission Date: 20191004
  Serious: Yes (Other)
  Sender: FDA-Public Use
  Company Number: GB-TEVA-2019-GB-1083083

PATIENT
  Age: 59 Year
  Sex: Male
  Weight: 77 kg

DRUGS (11)
  1. SIMVASTATIN. [Suspect]
     Active Substance: SIMVASTATIN
     Indication: BLOOD CHOLESTEROL INCREASED
     Dosage: NIGHT
     Dates: start: 20190315
  2. SALBUTAMOL [Concomitant]
     Active Substance: ALBUTEROL
     Dosage: ONE OR TWO PUFFS UP TO FOUR TIMES DAILY
     Route: 055
     Dates: start: 20180214
  3. FELODIPINE. [Concomitant]
     Active Substance: FELODIPINE
     Dosage: 1 DOSAGE FORMS
     Dates: start: 20180214
  4. CLOPIDOGREL [Concomitant]
     Active Substance: CLOPIDOGREL BISULFATE
     Dosage: 1 DOSAGE FORMS
     Dates: start: 20180214
  5. LOSARTAN. [Concomitant]
     Active Substance: LOSARTAN
     Dosage: 1 DOSAGE FORMS
     Dates: start: 20180214
  6. ATORVASTATIN [Concomitant]
     Active Substance: ATORVASTATIN
     Dosage: 1 DOSAGE FORMS
     Dates: start: 20180214, end: 20190315
  7. BENDROFLUMETHIAZIDE [Concomitant]
     Active Substance: BENDROFLUMETHIAZIDE
     Dosage: MORNING, 1 DOSAGE FORMS
     Dates: start: 20180907
  8. AMOXICILLIN. [Concomitant]
     Active Substance: AMOXICILLIN
     Indication: EAR INFECTION
     Dosage: 1500 MILLIGRAM
     Dates: start: 20190310, end: 20190315
  9. SYMBICORT [Concomitant]
     Active Substance: BUDESONIDE\FORMOTEROL FUMARATE DIHYDRATE
     Dosage: 1-2 PUFFS TWICE A DAY
     Dates: start: 20180214
  10. BRALTUS [Concomitant]
     Active Substance: TIOTROPIUM BROMIDE
     Dosage: FROM DEVICE, 1 DOSAGE FORMS
     Route: 055
     Dates: start: 20190325
  11. FEXOFENADINE [Concomitant]
     Active Substance: FEXOFENADINE HYDROCHLORIDE
     Dosage: 1 DOSAGE FORMS
     Dates: start: 20180214

REACTIONS (2)
  - Myalgia [Recovered/Resolved]
  - Lethargy [Unknown]

NARRATIVE: CASE EVENT DATE: 20190426
